FAERS Safety Report 8430198-X (Version None)
Quarter: 2012Q2

REPORT INFORMATION
  Report Type: 
  Country: None (occurrence: None)
  Receive Date: 20120604
  Receipt Date: 20120521
  Transmission Date: 20120825
  Serious: Yes (Hospitalization)
  Sender: FDA-Public Use
  Company Number: US-GDP-12413912

PATIENT
  Age: 62 Year
  Sex: Male

DRUGS (1)
  1. CLINDAMYCIN [Suspect]
     Indication: FOLLICULITIS
     Dosage: TOPICAL
     Route: 061

REACTIONS (6)
  - WHITE BLOOD CELL COUNT INCREASED [None]
  - PYREXIA [None]
  - TACHYCARDIA [None]
  - LEUKOCYTOSIS [None]
  - HYPOTENSION [None]
  - BACTERIAL SEPSIS [None]
